FAERS Safety Report 22031836 (Version 1)
Quarter: 2023Q1

REPORT INFORMATION
  Report Type: Other
  Country: AU (occurrence: AU)
  Receive Date: 20230224
  Receipt Date: 20230224
  Transmission Date: 20230417
  Serious: Yes (Other)
  Sender: FDA-Public Use
  Company Number: AU-CELLTRION INC.-2023AU004098

PATIENT

DRUGS (2)
  1. RITUXIMAB [Suspect]
     Active Substance: RITUXIMAB
     Indication: Product used for unknown indication
  2. CLADRIBINE [Concomitant]
     Active Substance: CLADRIBINE

REACTIONS (3)
  - Neutropenia [Unknown]
  - Hairy cell leukaemia recurrent [Unknown]
  - Product use in unapproved indication [Unknown]
